FAERS Safety Report 23158019 (Version 3)
Quarter: 2024Q3

REPORT INFORMATION
  Report Type: Spontaneous
  Country: JP (occurrence: JP)
  Receive Date: 20231108
  Receipt Date: 20240730
  Transmission Date: 20241016
  Serious: Yes (Life-Threatening, Other)
  Sender: BRISTOL MYERS SQUIBB
  Company Number: JP-ASTRAZENECA-230081591_013120_P_1

PATIENT
  Age: 70 Year
  Sex: Male
  Weight: 51 kg

DRUGS (5)
  1. PACLITAXEL [Suspect]
     Active Substance: PACLITAXEL
     Indication: Non-small cell lung cancer
     Dosage: DOSE UNKNOWN
     Dates: start: 202307
  2. IMFINZI [Suspect]
     Active Substance: DURVALUMAB
     Indication: Non-small cell lung cancer
     Route: 041
     Dates: start: 20230731, end: 20230731
  3. IMJUDO [Suspect]
     Active Substance: TREMELIMUMAB\TREMELIMUMAB-ACTL
     Indication: Non-small cell lung cancer
     Route: 041
     Dates: start: 20230731, end: 20230731
  4. CISPLATIN [Concomitant]
     Active Substance: CISPLATIN
     Indication: Non-small cell lung cancer
     Dates: start: 20230731, end: 20240201
  5. PEMETREXED [Concomitant]
     Active Substance: PEMETREXED
     Indication: Non-small cell lung cancer
     Dates: start: 20230731, end: 20240201

REACTIONS (1)
  - Immune-mediated hepatic disorder [Recovered/Resolved]

NARRATIVE: CASE EVENT DATE: 20230901
